FAERS Safety Report 12789160 (Version 1)
Quarter: 2016Q3

REPORT INFORMATION
  Report Type: Report from Study
  Country: DE (occurrence: DE)
  Receive Date: 20160928
  Receipt Date: 20160928
  Transmission Date: 20161109
  Serious: Yes (Other)
  Sender: FDA-Public Use
  Company Number: DE-ABBVIE-16K-062-1738455-00

PATIENT
  Age: 46 Year
  Sex: Female

DRUGS (7)
  1. CORTIMENT [Concomitant]
     Indication: PRODUCT USED FOR UNKNOWN INDICATION
  2. MYRRHINIL-INTEST [Concomitant]
     Indication: PRODUCT USED FOR UNKNOWN INDICATION
     Dates: start: 20160923
  3. PENTASA [Concomitant]
     Active Substance: MESALAMINE
     Indication: PRODUCT USED FOR UNKNOWN INDICATION
  4. HUMIRA [Suspect]
     Active Substance: ADALIMUMAB
     Indication: CROHN^S DISEASE
     Route: 058
     Dates: start: 20160407
  5. HUMIRA [Suspect]
     Active Substance: ADALIMUMAB
     Dosage: STOP DATE PLANNED : 4 WEEKS AFTER THE START
     Route: 058
     Dates: start: 20160923
  6. IBUPROFEN. [Suspect]
     Active Substance: IBUPROFEN
     Indication: POSTOPERATIVE CARE
     Route: 065
     Dates: start: 20160829
  7. HUMIRA [Suspect]
     Active Substance: ADALIMUMAB
     Route: 058
     Dates: start: 2016, end: 20160923

REACTIONS (5)
  - Abdominal hernia [Recovered/Resolved]
  - Nausea [Recovered/Resolved]
  - Muscle strain [Recovered/Resolved]
  - Condition aggravated [Recovered/Resolved]
  - Pain [Recovered/Resolved]

NARRATIVE: CASE EVENT DATE: 2016
